FAERS Safety Report 7110152-0 (Version None)
Quarter: 2010Q4

REPORT INFORMATION
  Report Type: 
  Country: None (occurrence: None)
  Receive Date: 20101118
  Receipt Date: 20101110
  Transmission Date: 20110411
  Serious: Yes (Hospitalization)
  Sender: FDA-Public Use
  Company Number: FR-NOVOPROD-318219

PATIENT
  Age: 78 Year
  Sex: Female

DRUGS (9)
  1. NOVONORM [Suspect]
     Indication: TYPE 2 DIABETES MELLITUS
     Dosage: 1 MG MORNING AND 2 MG AT NOON
     Route: 048
     Dates: start: 20100922, end: 20100922
  2. NOVONORM [Suspect]
     Dosage: 3 MG, QD
     Route: 048
     Dates: end: 20100914
  3. ARAVA [Concomitant]
     Dosage: AT NOON
  4. PREDNISOLON                        /00016201/ [Concomitant]
     Dosage: IN MORNING
  5. PROTELOS [Concomitant]
  6. OMEPRAZOLE [Concomitant]
     Dosage: IN EVENING
  7. CLARITHROMYCIN [Concomitant]
  8. COLCHICINE [Concomitant]
  9. ALDALIX [Concomitant]
     Dosage: IN MORNING
     Dates: end: 20100906

REACTIONS (2)
  - HYPOGLYCAEMIC COMA [None]
  - MEDICATION ERROR [None]
